FAERS Safety Report 8040655-6 (Version None)
Quarter: 2012Q1

REPORT INFORMATION
  Report Type: 
  Country: None (occurrence: None)
  Receive Date: 20120111
  Receipt Date: 20120105
  Transmission Date: 20120608
  Serious: No
  Sender: FDA-Public Use
  Company Number: US-AMGEN-USASP2011063613

PATIENT
  Age: 63 Year
  Sex: Female
  Weight: 88.435 kg

DRUGS (7)
  1. PREDNISONE TAB [Concomitant]
     Dosage: 5 MG, BID
     Dates: start: 20070101
  2. ENBREL [Suspect]
     Indication: RHEUMATOID ARTHRITIS
     Dosage: 50 MG, QWK
     Dates: start: 20090901, end: 20111101
  3. ENBREL [Suspect]
     Indication: SJOGREN'S SYNDROME
     Dosage: 50 MG, QWK
     Route: 058
     Dates: start: 20080101
  4. ENBREL [Suspect]
     Indication: OSTEOPOROSIS
  5. METHOTREXATE [Concomitant]
     Dosage: 2.5 MG, QWK
     Dates: start: 20070101
  6. ENBREL [Suspect]
     Indication: OSTEOARTHRITIS
  7. ASPIRIN [Concomitant]
     Dosage: 81 MG, QD
     Dates: start: 20070101

REACTIONS (3)
  - INJECTION SITE HAEMATOMA [None]
  - CONTUSION [None]
  - INJECTION SITE HAEMORRHAGE [None]
